FAERS Safety Report 23707350 (Version 1)
Quarter: 2024Q2

REPORT INFORMATION
  Report Type: Spontaneous
  Country: US (occurrence: US)
  Receive Date: 20240404
  Receipt Date: 20240404
  Transmission Date: 20240716
  Serious: No
  Sender: FDA-Public Use
  Company Number: US-GSK-US2024037957

PATIENT
  Age: 48 Year
  Sex: Female
  Weight: 52.62 kg

DRUGS (3)
  1. BENLYSTA [Suspect]
     Active Substance: BELIMUMAB
     Indication: Systemic lupus erythematosus
     Dosage: 200 MG
     Dates: start: 20230317, end: 20230711
  2. VALIUM [Concomitant]
     Active Substance: DIAZEPAM
     Indication: Insomnia
     Dosage: 10 MG
     Dates: start: 20230808, end: 20230815
  3. ZITHROMAX [Concomitant]
     Active Substance: AZITHROMYCIN DIHYDRATE
     Indication: Infection
     Dosage: UNK
     Dates: start: 20230721, end: 20230725

REACTIONS (5)
  - Insomnia [Recovered/Resolved with Sequelae]
  - Mania [Recovered/Resolved]
  - Upper respiratory tract infection [Recovered/Resolved]
  - Ear infection [Recovered/Resolved]
  - Fungal infection [Recovered/Resolved]

NARRATIVE: CASE EVENT DATE: 20230601
